FAERS Safety Report 5135888-2 (Version None)
Quarter: 2006Q4

REPORT INFORMATION
  Report Type: 
  Country: None (occurrence: None)
  Receive Date: 20061020
  Receipt Date: 20061011
  Transmission Date: 20070319
  Serious: Yes (Life-Threatening)
  Sender: FDA-Public Use
  Company Number: 230248

PATIENT
  Age: 55 Year
  Sex: Female
  Weight: 76 kg

DRUGS (1)
  1. RAPTIVA [Suspect]
     Indication: PSORIASIS
     Dosage: 0.5 G, 1/WEEK, SUBCUTANEOUS
     Route: 058
     Dates: start: 20040505

REACTIONS (2)
  - ENCEPHALITIS HERPES [None]
  - URINARY TRACT INFECTION [None]
